FAERS Safety Report 6831406-9 (Version None)
Quarter: 2010Q3

REPORT INFORMATION
  Report Type: 
  Country: None (occurrence: None)
  Receive Date: 20100707
  Receipt Date: 20100628
  Transmission Date: 20110219
  Serious: Yes (Other)
  Sender: FDA-Public Use
  Company Number: 8021277

PATIENT
  Age: 35 Year
  Sex: Female

DRUGS (5)
  1. KEPPRA [Suspect]
     Indication: EPILEPSY
     Dosage: (500 MG BID ORAL), (500 MG, DOSE FREQ.: DAILY ORAL), (250 MG BID ORAL)
     Route: 048
     Dates: end: 20061114
  2. KEPPRA [Suspect]
     Indication: EPILEPSY
     Dosage: (500 MG BID ORAL), (500 MG, DOSE FREQ.: DAILY ORAL), (250 MG BID ORAL)
     Route: 048
     Dates: end: 20070211
  3. PRENATAL VITAMINS [Concomitant]
  4. FOLIC ACID [Concomitant]
  5. LAMICTAL [Concomitant]

REACTIONS (10)
  - ACTIVITIES OF DAILY LIVING IMPAIRED [None]
  - ANGER [None]
  - CAESAREAN SECTION [None]
  - DEPRESSION [None]
  - DRUG EXPOSURE DURING PREGNANCY [None]
  - IMPAIRED WORK ABILITY [None]
  - OEDEMA [None]
  - PARTIAL SEIZURES [None]
  - PREGNANCY [None]
  - SUICIDAL IDEATION [None]
